FAERS Safety Report 10191089 (Version 1)
Quarter: 2014Q2

REPORT INFORMATION
  Report Type: Spontaneous
  Country: US (occurrence: None)
  Receive Date: 20140521
  Receipt Date: 20140521
  Transmission Date: 20141212
  Serious: No
  Sender: FDA-Public Use
  Company Number: None

PATIENT
  Age: 60 Year
  Sex: Male
  Weight: 98.88 kg

DRUGS (3)
  1. RIZATRIPTAN [Suspect]
     Dosage: 1 PILL, PRN/AS NEEDED
  2. PAROXETINE 20 MG [Suspect]
     Dosage: 1 PILL, QD
  3. BUPROPION HC1 ER (XL) 300 MG [Concomitant]

REACTIONS (7)
  - Hallucination [None]
  - Nausea [None]
  - Chills [None]
  - Pyrexia [None]
  - Tremor [None]
  - Feeling abnormal [None]
  - Visual impairment [None]
